FAERS Safety Report 16676253 (Version 1)
Quarter: 2019Q3

REPORT INFORMATION
  Report Type: Spontaneous
  Country: FR (occurrence: FR)
  Receive Date: 20190807
  Receipt Date: 20190807
  Transmission Date: 20191004
  Serious: Yes (Hospitalization)
  Sender: FDA-Public Use
  Company Number: FR-DRREDDYS-GER/FRA/19/0112861

PATIENT
  Age: 64 Year
  Sex: Female
  Weight: 69 kg

DRUGS (9)
  1. FLUDEX 1.5 MG, COMPRIMAE PELLICULAE A LIBAERATION PROLONGAEE [Concomitant]
     Indication: PRODUCT USED FOR UNKNOWN INDICATION
     Dosage: FILM-COATED SUSTAINED-RELEASE TABLET
     Route: 048
  2. LERCAN 10 MG, COMPRIMAE PELLICULAE SAECABLE [Concomitant]
     Indication: PRODUCT USED FOR UNKNOWN INDICATION
     Dosage: SCORED FILM-COATED TABLET
     Route: 048
  3. PREVISCAN 20 MG, COMPRIMAE SAECABLE [Concomitant]
     Indication: PRODUCT USED FOR UNKNOWN INDICATION
     Dosage: SCORED TABLET
     Route: 048
  4. BISOPROLOL (FUMARATE DE) [Concomitant]
     Active Substance: BISOPROLOL FUMARATE
     Indication: PRODUCT USED FOR UNKNOWN INDICATION
     Route: 048
  5. OFLOXACINE [Concomitant]
     Active Substance: OFLOXACIN
     Indication: PRODUCT USED FOR UNKNOWN INDICATION
     Route: 041
     Dates: start: 20190516
  6. COVERSYL 5 MG, COMPRIMAE PELLICULAE SAECABLE [Concomitant]
     Indication: PRODUCT USED FOR UNKNOWN INDICATION
     Dosage: SCORED FILM-COATED TABLET
     Route: 048
  7. CEFEPIME [Concomitant]
     Active Substance: CEFEPIME HYDROCHLORIDE
     Indication: PRODUCT USED FOR UNKNOWN INDICATION
     Route: 041
     Dates: start: 20190512
  8. CORDARONE 200 MG, COMPRIMAE SAECABLE [Concomitant]
     Indication: PRODUCT USED FOR UNKNOWN INDICATION
     Dosage: SCORED/BREAKABLE TABLET
     Route: 048
  9. DAPTOMYCIN. [Suspect]
     Active Substance: DAPTOMYCIN
     Indication: PNEUMONIA ASPIRATION
     Route: 041
     Dates: start: 20190516, end: 20190619

REACTIONS (1)
  - Interstitial lung disease [Recovered/Resolved]

NARRATIVE: CASE EVENT DATE: 20190617
